FAERS Safety Report 24979228 (Version 2)
Quarter: 2025Q1

REPORT INFORMATION
  Report Type: Other
  Country: US (occurrence: US)
  Receive Date: 20250218
  Receipt Date: 20250228
  Transmission Date: 20250408
  Serious: Yes (Other)
  Sender: TOLMAR
  Company Number: US-TOLMAR, INC.-25US056563

PATIENT
  Age: 74 Year
  Sex: Female

DRUGS (1)
  1. ELIGARD [Suspect]
     Active Substance: LEUPROLIDE ACETATE
     Indication: Dementia Alzheimer^s type
     Dates: start: 20240812

REACTIONS (4)
  - Syncope [Recovered/Resolved]
  - Viral infection [Unknown]
  - Dehydration [Unknown]
  - Haemochromatosis [Unknown]

NARRATIVE: CASE EVENT DATE: 20240820
